FAERS Safety Report 4962366-3 (Version None)
Quarter: 2006Q2

REPORT INFORMATION
  Report Type: 
  Country: None (occurrence: None)
  Receive Date: 20060404
  Receipt Date: 20060323
  Transmission Date: 20061013
  Serious: Yes (Hospitalization)
  Sender: FDA-Public Use
  Company Number: US-MERCK-0603USA03965

PATIENT
  Age: 32 Year
  Sex: Male
  Weight: 93 kg

DRUGS (4)
  1. VIOXX [Suspect]
     Indication: SACROILIITIS
     Route: 048
     Dates: start: 20010501, end: 20040901
  2. TYLENOL (CAPLET) [Concomitant]
     Route: 065
  3. IBUPROFEN [Concomitant]
     Route: 065
  4. VICKS DAYQUIL [Concomitant]
     Route: 065

REACTIONS (2)
  - ANXIETY [None]
  - MYOCARDIAL INFARCTION [None]
